FAERS Safety Report 13550159 (Version 2)
Quarter: 2017Q3

REPORT INFORMATION
  Report Type: Spontaneous
  Country: US (occurrence: US)
  Receive Date: 20170516
  Receipt Date: 20170828
  Transmission Date: 20171127
  Serious: Yes (Death)
  Sender: FDA-Public Use
  Company Number: US-UNITED THERAPEUTICS-UNT-2017-006998

PATIENT
  Sex: Male

DRUGS (1)
  1. ORENITRAM [Suspect]
     Active Substance: TREPROSTINIL
     Indication: PULMONARY ARTERIAL HYPERTENSION
     Dosage: 1.5 MG, BID
     Route: 048
     Dates: start: 20160902, end: 20170509

REACTIONS (1)
  - Death [Fatal]

NARRATIVE: CASE EVENT DATE: 20170509
